FAERS Safety Report 4567976-3 (Version None)
Quarter: 2005Q1

REPORT INFORMATION
  Report Type: 
  Country: None (occurrence: None)
  Receive Date: 20050202
  Receipt Date: 20050105
  Transmission Date: 20050727
  Serious: Yes (Death)
  Sender: FDA-Public Use
  Company Number: SE-NOVOPROD-241494

PATIENT
  Age: 61 Year
  Sex: Male

DRUGS (2)
  1. NOVONORM [Suspect]
     Indication: INSULIN-REQUIRING TYPE II DIABETES MELLITUS
     Dosage: .5 UNK, BID
     Dates: start: 20040331, end: 20040415
  2. INSULATARD NPH HUMAN [Concomitant]
     Indication: INSULIN-REQUIRING TYPE II DIABETES MELLITUS
     Dosage: 4 IU, QD

REACTIONS (5)
  - BLOOD PRESSURE DECREASED [None]
  - HAEMOGLOBIN DECREASED [None]
  - HEPATIC FAILURE [None]
  - HEPATITIS ALCOHOLIC [None]
  - HYPOGLYCAEMIA [None]
